FAERS Safety Report 5968721-7 (Version None)
Quarter: 2008Q4

REPORT INFORMATION
  Report Type: 
  Country: None (occurrence: None)
  Receive Date: 20081126
  Receipt Date: 20081120
  Transmission Date: 20090506
  Serious: Yes (Hospitalization)
  Sender: FDA-Public Use
  Company Number: A0758405A

PATIENT
  Age: 69 Year
  Sex: Female
  Weight: 64.8 kg

DRUGS (3)
  1. MELPHALAN [Suspect]
     Indication: MULTIPLE MYELOMA
     Dosage: 14MG PER DAY
     Route: 048
     Dates: start: 20081019, end: 20081022
  2. VELCADE [Suspect]
     Indication: MULTIPLE MYELOMA
     Dosage: 1.3MGM2 CYCLIC
     Route: 042
     Dates: start: 20081019, end: 20081030
  3. PREDNISONE TAB [Suspect]
     Dosage: 100MG CYCLIC
     Route: 048
     Dates: start: 20081019, end: 20081022

REACTIONS (5)
  - ASTHENIA [None]
  - DIARRHOEA [None]
  - NAUSEA [None]
  - NEUTROPENIA [None]
  - VOMITING [None]
